FAERS Safety Report 14626020 (Version 3)
Quarter: 2018Q1

REPORT INFORMATION
  Report Type: Report from Study
  Country: US (occurrence: US)
  Receive Date: 20180312
  Receipt Date: 20180330
  Transmission Date: 20180509
  Serious: Yes (Death, Life-Threatening, Hospitalization, Other)
  Sender: FDA-Public Use
  Company Number: US-BRISTOL-MYERS SQUIBB COMPANY-BMS-2018-022393

PATIENT
  Age: 68 Year
  Sex: Female
  Weight: 47.9 kg

DRUGS (3)
  1. AMLODIPINE [Concomitant]
     Active Substance: AMLODIPINE BESYLATE
     Indication: PRODUCT USED FOR UNKNOWN INDICATION
     Route: 065
  2. NIVOLUMAB [Suspect]
     Active Substance: NIVOLUMAB
     Indication: OVARIAN CANCER RECURRENT
     Dosage: 240 MG, Q2WK
     Route: 042
     Dates: start: 20170911
  3. BEVACIZUMAB. [Suspect]
     Active Substance: BEVACIZUMAB
     Indication: OVARIAN CANCER RECURRENT
     Dosage: 10 MG/KG, Q2WK
     Route: 042
     Dates: start: 20170911

REACTIONS (4)
  - Intestinal ischaemia [Unknown]
  - Small intestinal perforation [Unknown]
  - Sepsis [Fatal]
  - Ascites [Unknown]

NARRATIVE: CASE EVENT DATE: 20180302
